FAERS Safety Report 6596357-6 (Version None)
Quarter: 2010Q1

REPORT INFORMATION
  Report Type: 
  Country: None (occurrence: None)
  Receive Date: 20100223
  Receipt Date: 20100212
  Transmission Date: 20100710
  Serious: Yes (Hospitalization)
  Sender: FDA-Public Use
  Company Number: BE-ELI_LILLY_AND_COMPANY-BE201002003845

PATIENT
  Age: 73 Year
  Sex: Female
  Weight: 77.88 kg

DRUGS (6)
  1. BYETTA [Suspect]
     Indication: TYPE 2 DIABETES MELLITUS
     Dosage: 10 UG, 2/D
     Route: 058
     Dates: start: 20091117, end: 20091201
  2. BYETTA [Suspect]
     Dosage: 10 UG, 2/D
     Route: 058
     Dates: start: 20091201, end: 20100121
  3. UNI DIAMICRON [Concomitant]
     Indication: DIABETES MELLITUS
     Dosage: UNK UNK,
     Route: 048
  4. GLUCOPHAGE [Concomitant]
     Indication: DIABETES MELLITUS
     Dosage: 3 D/F, UNKNOWN
     Route: 048
     Dates: end: 20100121
  5. CO APROVEL [Concomitant]
     Indication: RETINOPATHY
     Dosage: 1 D/F, UNKNOWN
     Route: 048
  6. AMLOR [Concomitant]
     Dosage: 1 D/F, UNK
     Route: 048

REACTIONS (3)
  - ABDOMINAL PAIN [None]
  - PANCREATITIS [None]
  - PANCREATITIS ACUTE [None]
